FAERS Safety Report 6953874-4 (Version None)
Quarter: 2010Q3

REPORT INFORMATION
  Report Type: 
  Country: None (occurrence: None)
  Receive Date: 20100829
  Receipt Date: 20100624
  Transmission Date: 20110219
  Serious: No
  Sender: FDA-Public Use
  Company Number: US-ABBOTT-10P-163-0654244-00

PATIENT
  Sex: Male

DRUGS (11)
  1. NIASPAN [Suspect]
     Indication: BLOOD CHOLESTEROL INCREASED
     Route: 048
     Dates: start: 20100301, end: 20100602
  2. NIASPAN [Suspect]
     Route: 048
     Dates: start: 20100603
  3. NIASPAN [Suspect]
     Dates: start: 20100601, end: 20100601
  4. ACTOS [Concomitant]
     Indication: PRODUCT USED FOR UNKNOWN INDICATION
  5. ASPIRIN [Concomitant]
     Indication: PRODUCT USED FOR UNKNOWN INDICATION
     Route: 048
  6. CARVEDILOL [Concomitant]
     Indication: CARDIAC DISORDER
     Route: 048
  7. MEPRAZOLE [Concomitant]
     Indication: GASTRIC DISORDER
  8. AVANDIA [Concomitant]
     Indication: DIABETES MELLITUS
     Route: 048
  9. GLYBURIDE [Concomitant]
     Indication: DIABETES MELLITUS
     Route: 048
  10. RAMIPRIL [Concomitant]
     Indication: CARDIAC DISORDER
  11. MAGNESIUM [Concomitant]
     Indication: MINERAL SUPPLEMENTATION
     Dosage: FOUR TIMES DAILY

REACTIONS (7)
  - EYE SWELLING [None]
  - FLUSHING [None]
  - HEADACHE [None]
  - LIP SWELLING [None]
  - PARAESTHESIA [None]
  - PRURITUS [None]
  - URTICARIA [None]
